FAERS Safety Report 13443381 (Version 1)
Quarter: 2017Q2

REPORT INFORMATION
  Report Type: Spontaneous
  Country: US (occurrence: US)
  Receive Date: 20170413
  Receipt Date: 20170413
  Transmission Date: 20170830
  Serious: No
  Sender: FDA-Public Use
  Company Number: None

PATIENT
  Age: 60 Year
  Sex: Female

DRUGS (1)
  1. PROLIA [Suspect]
     Active Substance: DENOSUMAB
     Dosage: 1 ML (60MG) EVERY 6 MONTHS SUBCUTANEOUSLY
     Route: 058
     Dates: start: 20170201, end: 20170301

REACTIONS (8)
  - Cystitis [None]
  - Myalgia [None]
  - Arthralgia [None]
  - Gingivitis [None]
  - Jaw disorder [None]
  - Bone pain [None]
  - Urticaria [None]
  - Infection [None]

NARRATIVE: CASE EVENT DATE: 20170215
